FAERS Safety Report 9512104 (Version 1)
Quarter: 2013Q1

REPORT INFORMATION
  Report Type: Spontaneous
  Country: US (occurrence: None)
  Receive Date: 20130305
  Receipt Date: 20130305
  Transmission Date: 20140127
  Serious: Yes (Other)
  Sender: FDA-Public Use
  Company Number: 163-21880-11113967

PATIENT
  Age: 75 Year
  Sex: Male
  Weight: 99.34 kg

DRUGS (8)
  1. REVLIMID [Suspect]
     Indication: PLASMA CELL MYELOMA
     Route: 048
     Dates: start: 201105
  2. MELPHALAN [Suspect]
     Indication: PLASMA CELL MYELOMA
     Dosage: 18 MD D 1-4 A CYCLE
     Dates: start: 20111027, end: 20111107
  3. VELCADE (BORTEZOMID) (UNKNOWN) [Concomitant]
  4. HYDROCHLOROTHIAZIDE (HYDROCHLORTHIAZIDE) UNKNOWN [Concomitant]
  5. PRILOSEC (OMEPRAZOLE) UNKNOWN [Concomitant]
  6. AMLODIPINE (AMLODIPINE) (UNKNOWN) [Concomitant]
  7. PREDNISONE (PREDNISONE) [Concomitant]
  8. LISINOPRIL (LISINOPRIL) [Concomitant]

REACTIONS (1)
  - Platelet count decreased [None]
